FAERS Safety Report 17907779 (Version 1)
Quarter: 2020Q2

REPORT INFORMATION
  Report Type: Spontaneous
  Country: SE (occurrence: SE)
  Receive Date: 20200617
  Receipt Date: 20200617
  Transmission Date: 20200714
  Serious: Yes (Other)
  Sender: FDA-Public Use
  Company Number: SE-TEVA-2020-SE-1788024

PATIENT
  Age: 56 Year
  Sex: Female

DRUGS (8)
  1. PROPAVAN [Concomitant]
     Active Substance: PROPIOMAZINE
     Dosage: 1-2 VB
  2. PREGABALIN. [Suspect]
     Active Substance: PREGABALIN
     Indication: DEPRESSION
     Route: 065
     Dates: start: 202003
  3. DULOXETINE. [Suspect]
     Active Substance: DULOXETINE
     Indication: DEPRESSION
     Route: 065
     Dates: start: 202003
  4. ALVEDON 500 MG FILMDRAGERAD TABLETT [Concomitant]
     Active Substance: ACETAMINOPHEN
     Dosage: VB
  5. OLANZAPINE. [Concomitant]
     Active Substance: OLANZAPINE
     Dosage: 5 MG
     Dates: start: 202003
  6. ATARAX [Concomitant]
     Active Substance: HYDROXYZINE HYDROCHLORIDE
     Dosage: 75 MG
  7. ESTRADOT [Concomitant]
     Active Substance: ESTRADIOL
     Dosage: FORM OF ADMIN. TEXT : BAND-AID,  24 H
  8. MELATONIN AGB [Concomitant]
     Dosage: 1-2 TO NIGHT

REACTIONS (1)
  - Oedema peripheral [Not Recovered/Not Resolved]

NARRATIVE: CASE EVENT DATE: 202003
